FAERS Safety Report 18158016 (Version 1)
Quarter: 2020Q3

REPORT INFORMATION
  Report Type: Spontaneous
  Country: US (occurrence: US)
  Receive Date: 20200817
  Receipt Date: 20200817
  Transmission Date: 20201103
  Serious: No
  Sender: FDA-Public Use
  Company Number: US-MEDEXUS PHARMA, INC.-2019MED00296

PATIENT
  Age: 6 Year
  Sex: Male
  Weight: 22.22 kg

DRUGS (2)
  1. RASUVO [Suspect]
     Active Substance: METHOTREXATE SODIUM
     Indication: CROHN^S DISEASE
     Dosage: 15 MG, 1X/WEEK ON FRIDAYS INJECTED INTO LEG
     Dates: start: 201908, end: 2019
  2. RASUVO [Suspect]
     Active Substance: METHOTREXATE SODIUM
     Dosage: 15 MG, 1X/WEEK ON FRIDAYS INJECTED INTO RIGHT ARM
     Dates: start: 2019

REACTIONS (5)
  - Accidental exposure to product [Recovered/Resolved]
  - Device failure [Recovered/Resolved]
  - Injection site discomfort [Recovered/Resolved]
  - Injection site haemorrhage [Recovered/Resolved]
  - Off label use [Not Recovered/Not Resolved]

NARRATIVE: CASE EVENT DATE: 2019
